FAERS Safety Report 5237926-5 (Version None)
Quarter: 2007Q1

REPORT INFORMATION
  Report Type: 
  Country: None (occurrence: None)
  Receive Date: 20070209
  Receipt Date: 20061103
  Transmission Date: 20070707
  Serious: Yes (Life-Threatening)
  Sender: FDA-Public Use
  Company Number: 2007SP001020

PATIENT
  Age: 27 Year
  Sex: Female

DRUGS (10)
  1. RINDERON (BETAMETHASONE) (BETAMETHASONE) [Suspect]
     Indication: DRUG HYPERSENSITIVITY
     Dosage: SEE IMAGE
     Route: 048
     Dates: start: 20060622, end: 20060622
  2. RINDERON (BETAMETHASONE) (BETAMETHASONE) [Suspect]
     Indication: DRUG HYPERSENSITIVITY
     Dosage: SEE IMAGE
     Route: 048
     Dates: start: 20060623
  3. RINDERON (BETAMETHASONE) (BETAMETHASONE) [Suspect]
     Indication: DRUG HYPERSENSITIVITY
     Dosage: SEE IMAGE
     Route: 048
     Dates: start: 20060701
  4. RINDERON (BETAMETHASONE) (BETAMETHASONE) [Suspect]
     Indication: DRUG HYPERSENSITIVITY
     Dosage: SEE IMAGE
     Route: 048
     Dates: start: 20060930
  5. VEGETAMIN (VEGETAMIN) [Suspect]
     Indication: PANIC DISORDER
     Dosage: 1 DF; QD; PO
     Route: 048
     Dates: start: 20060519, end: 20060620
  6. ALPRAZOLAM [Suspect]
     Indication: PANIC DISORDER
     Dosage: 2.4 MG; QD; PO
     Route: 048
     Dates: start: 20060101, end: 20060620
  7. SEROQUEL [Suspect]
     Indication: PANIC DISORDER
     Dosage: 150 MG; QD; PO
     Route: 048
     Dates: start: 20060101, end: 20060620
  8. ROHYPNOL (FLUNITRAZEPAM) [Suspect]
     Indication: PANIC DISORDER
     Dosage: 1 M G; QD; PO
     Route: 048
     Dates: start: 20060601, end: 20060620
  9. PAXIL [Suspect]
     Indication: PANIC DISORDER
     Dosage: 20 MG; QD; PO
     Route: 048
     Dates: start: 20060601, end: 20060620
  10. PREDNISOLONE (CON.) [Concomitant]

REACTIONS (5)
  - DRUG HYPERSENSITIVITY [None]
  - EOSINOPHILIA [None]
  - HEPATIC FUNCTION ABNORMAL [None]
  - STEVENS-JOHNSON SYNDROME [None]
  - VIRAL INFECTION [None]
